FAERS Safety Report 23648953 (Version 1)
Quarter: 2024Q1

REPORT INFORMATION
  Report Type: Spontaneous
  Country: US (occurrence: None)
  Receive Date: 20240318
  Receipt Date: 20240318
  Transmission Date: 20240409
  Serious: Yes (Death)
  Sender: FDA-Public Use
  Company Number: None

PATIENT
  Age: 54 Year
  Sex: Male
  Weight: 152.68 kg

DRUGS (6)
  1. ENOXAPARIN SODIUM [Suspect]
     Active Substance: ENOXAPARIN SODIUM
     Indication: Thrombosis prophylaxis
     Dosage: FREQUENCY : DAILY;?
     Route: 058
  2. FUROSEMIDE [Concomitant]
     Active Substance: FUROSEMIDE
  3. OMEPRAZOLE [Concomitant]
     Active Substance: OMEPRAZOLE
  4. METFORMIN [Concomitant]
     Active Substance: METFORMIN HYDROCHLORIDE
  5. DICLOFENAC SODIUM [Concomitant]
     Active Substance: DICLOFENAC\DICLOFENAC SODIUM
  6. CBD extract [Concomitant]

REACTIONS (1)
  - Pulmonary embolism [None]

NARRATIVE: CASE EVENT DATE: 20210924
